FAERS Safety Report 8816935 (Version 1)
Quarter: 2012Q4

REPORT INFORMATION
  Report Type: Spontaneous
  Country: US (occurrence: None)
  Receive Date: 20121002
  Receipt Date: 20121002
  Transmission Date: 20130627
  Serious: Yes (Life-Threatening, Other)
  Sender: FDA-Public Use
  Company Number: None

PATIENT
  Age: 38 Year
  Sex: Female
  Weight: 120 kg

DRUGS (1)
  1. IMITREX [Suspect]
     Indication: MIGRAINE
     Dosage: start of headache
     Route: 048
     Dates: start: 20120508, end: 20120508

REACTIONS (4)
  - Malignant hypertension [None]
  - Acute myocardial infarction [None]
  - Urticaria [None]
  - Accelerated hypertension [None]
